FAERS Safety Report 4619590-9 (Version None)
Quarter: 2005Q2

REPORT INFORMATION
  Report Type: 
  Country: None (occurrence: None)
  Receive Date: 20050321
  Receipt Date: 20040608
  Transmission Date: 20051028
  Serious: Yes (Death, Other)
  Sender: FDA-Public Use
  Company Number: 2004-06-0913

PATIENT
  Age: 49 Year
  Sex: Male
  Weight: 68.9467 kg

DRUGS (12)
  1. PEG-INTRON [Suspect]
     Indication: HEPATITIS C
     Dosage: SUBCUTANEOUS
     Route: 058
     Dates: start: 20011207, end: 20020103
  2. REBETOL [Suspect]
     Indication: HEPATITIS C
     Dosage: 1000 MG PO QD ORAL
     Route: 048
     Dates: start: 20011207, end: 20020103
  3. ZOLOFT [Suspect]
     Dosage: OVERDOSE ORAL;  50 MG QD ORAL
     Route: 048
     Dates: start: 20040323, end: 20040323
  4. ZOLOFT [Suspect]
     Dosage: OVERDOSE ORAL;  50 MG QD ORAL
     Route: 048
     Dates: start: 20020318
  5. VALIUM [Suspect]
     Indication: ANXIETY
     Dosage: OVERDOSE ORAL;  10-30 MG QD ORAL
     Route: 048
     Dates: start: 20040323, end: 20040323
  6. VALIUM [Suspect]
     Indication: ANXIETY
     Dosage: OVERDOSE ORAL;  10-30 MG QD ORAL
     Route: 048
     Dates: start: 20020118
  7. KLONOPIN [Suspect]
     Indication: ANXIETY
     Dosage: 1 MG BID ORAL
     Route: 048
     Dates: start: 20020409
  8. RESTORIL [Concomitant]
  9. ATIVAN [Concomitant]
  10. SONATA [Concomitant]
  11. REMERON [Concomitant]
  12. DOXEPIN HCL [Concomitant]

REACTIONS (9)
  - BLOOD PRESSURE INCREASED [None]
  - COMPLETED SUICIDE [None]
  - DYSPHEMIA [None]
  - HYPOMANIA [None]
  - MANIA [None]
  - OVERDOSE [None]
  - PERSONALITY DISORDER [None]
  - TACHYCARDIA [None]
  - TREMOR [None]
